FAERS Safety Report 6878742-8 (Version None)
Quarter: 2010Q3

REPORT INFORMATION
  Report Type: 
  Country: None (occurrence: None)
  Receive Date: 20100728
  Receipt Date: 20100715
  Transmission Date: 20110219
  Serious: Yes (Hospitalization, Other)
  Sender: FDA-Public Use
  Company Number: GB-WATSON-2010-09702

PATIENT
  Age: 88 Year
  Sex: Female

DRUGS (4)
  1. RISPERIDONE [Suspect]
     Indication: AGITATION
     Dosage: 500 MCG, BID
     Route: 048
     Dates: start: 20100401
  2. RISPERIDONE [Suspect]
     Indication: DEMENTIA
  3. FLUCLOXACILLIN [Concomitant]
  4. LACTULOSE [Concomitant]

REACTIONS (1)
  - DEEP VEIN THROMBOSIS [None]
